FAERS Safety Report 11239321 (Version 3)
Quarter: 2015Q3

REPORT INFORMATION
  Report Type: Spontaneous
  Country: US (occurrence: US)
  Receive Date: 20150706
  Receipt Date: 20150720
  Transmission Date: 20151125
  Serious: Yes (Hospitalization)
  Sender: FDA-Public Use
  Company Number: US-MERCK-1506USA005486

PATIENT
  Age: 61 Year
  Sex: Male

DRUGS (7)
  1. CUBICIN [Suspect]
     Active Substance: DAPTOMYCIN
     Indication: ENTEROCOCCAL SEPSIS
     Dosage: 360 MG, QD
     Route: 042
     Dates: start: 20130927, end: 20131003
  2. ZOSYN [Concomitant]
     Active Substance: PIPERACILLIN SODIUM\TAZOBACTAM SODIUM
     Indication: SEPSIS
     Dosage: UNK
     Route: 065
  3. MICAFUNGIN [Concomitant]
     Active Substance: MICAFUNGIN
     Dosage: UNK
     Route: 065
  4. LINEZOLID. [Concomitant]
     Active Substance: LINEZOLID
     Dosage: UNK
  5. CUBICIN [Suspect]
     Active Substance: DAPTOMYCIN
     Dosage: 500 MG, UNK
     Route: 042
     Dates: start: 20131003, end: 20131028
  6. CEFAZOLIN [Concomitant]
     Active Substance: CEFAZOLIN
     Dosage: UNK
     Route: 065
  7. AMINO ACIDS (UNSPECIFIED) (+) CARBOHYDRATES (UNSPECIFIED) (+) ELECTROL [Concomitant]
     Dosage: UNK
     Route: 065

REACTIONS (9)
  - Interstitial lung disease [Recovered/Resolved]
  - Respiratory distress [Recovered/Resolved]
  - Enterococcal sepsis [Recovered/Resolved]
  - Pneumonia [Recovered/Resolved]
  - Klebsiella infection [Recovered/Resolved]
  - Blood creatinine increased [Recovered/Resolved]
  - Fluid overload [Recovered/Resolved]
  - Pulmonary oedema [Recovered/Resolved]
  - Antimicrobial susceptibility test resistant [Recovered/Resolved]

NARRATIVE: CASE EVENT DATE: 20131028
